FAERS Safety Report 21450206 (Version 1)
Quarter: 2022Q4

REPORT INFORMATION
  Report Type: Spontaneous
  Country: US (occurrence: None)
  Receive Date: 20221013
  Receipt Date: 20221013
  Transmission Date: 20230113
  Serious: Yes (Hospitalization)
  Sender: FDA-Public Use
  Company Number: US-ACS-20220140

PATIENT
  Age: 74 Year
  Sex: Male

DRUGS (5)
  1. CEFAZOLIN [Interacting]
     Active Substance: CEFAZOLIN
     Indication: Diabetic foot infection
     Route: 040
  2. CEFAZOLIN [Interacting]
     Active Substance: CEFAZOLIN
     Indication: Diabetic foot infection
     Dosage: INADVERTENT ADMINISTRATION OF DOUBLE DOSE (4 GRAMS) FOR TWO DOSES
     Route: 040
  3. APIXABAN [Interacting]
     Active Substance: APIXABAN
     Indication: Anticoagulant therapy
     Route: 048
  4. VANCOMYCIN [Concomitant]
     Active Substance: VANCOMYCIN
     Indication: Diabetic foot infection
     Dosage: WITHDRAWN ON DAY 13 ()
     Route: 040
  5. CEFEPIME [Concomitant]
     Active Substance: CEFEPIME HYDROCHLORIDE
     Indication: Diabetic foot infection
     Dosage: WITHDRAWN ON DAY 13 ()
     Route: 040

REACTIONS (3)
  - International normalised ratio increased [Recovered/Resolved]
  - Incorrect dosage administered [Unknown]
  - Drug interaction [Unknown]
